FAERS Safety Report 16261319 (Version 1)
Quarter: 2019Q2

REPORT INFORMATION
  Report Type: Spontaneous
  Country: FI (occurrence: FI)
  Receive Date: 20190501
  Receipt Date: 20190501
  Transmission Date: 20190711
  Serious: Yes (Other)
  Sender: FDA-Public Use
  Company Number: FI-TEVA-2019-FI-1043052

PATIENT
  Age: 25 Year
  Sex: Female

DRUGS (2)
  1. DESOGESTREL [Suspect]
     Active Substance: DESOGESTREL
     Dosage: 75,?G,DAILY
     Route: 048
     Dates: end: 20190401
  2. OBSIDAN FE++ [Concomitant]
     Indication: ANAEMIA
     Dosage: 200 MILLIGRAM DAILY;
     Route: 048

REACTIONS (1)
  - Pregnancy on oral contraceptive [Recovering/Resolving]
